FAERS Safety Report 20591591 (Version 2)
Quarter: 2022Q2

REPORT INFORMATION
  Report Type: Spontaneous
  Country: US (occurrence: US)
  Receive Date: 20220314
  Receipt Date: 20220412
  Transmission Date: 20220721
  Serious: Yes (Other)
  Sender: FDA-Public Use
  Company Number: US-PFIZER INC-2020443512

PATIENT
  Age: 77 Year
  Sex: Male
  Weight: 81.65 kg

DRUGS (1)
  1. LIPITOR [Suspect]
     Active Substance: ATORVASTATIN CALCIUM
     Indication: Hypertension
     Dosage: 40 MG, DAILY
     Route: 048

REACTIONS (2)
  - Back disorder [Unknown]
  - Off label use [Unknown]
